FAERS Safety Report 14589846 (Version 1)
Quarter: 2018Q1

REPORT INFORMATION
  Report Type: Spontaneous
  Country: US (occurrence: US)
  Receive Date: 20180302
  Receipt Date: 20180302
  Transmission Date: 20180509
  Serious: No
  Sender: FDA-Public Use
  Company Number: US-009507513-1802USA002355

PATIENT
  Age: 51 Year
  Sex: Female

DRUGS (1)
  1. DIPROLENE [Suspect]
     Active Substance: BETAMETHASONE DIPROPIONATE
     Indication: DYSHIDROTIC ECZEMA
     Dosage: UNK, TWICE DAILY UNDER OCCLUSION AT NIGHT

REACTIONS (1)
  - Drug ineffective [Unknown]
